FAERS Safety Report 5401914-6 (Version None)
Quarter: 2007Q3

REPORT INFORMATION
  Report Type: 
  Country: None (occurrence: None)
  Receive Date: 20070726
  Receipt Date: 20070711
  Transmission Date: 20080115
  Serious: Yes (Hospitalization)
  Sender: FDA-Public Use
  Company Number: 2007BM000081

PATIENT
  Age: 19 Year
  Sex: Male

DRUGS (1)
  1. ORAPRED [Suspect]

REACTIONS (9)
  - BLOOD CREATINE PHOSPHOKINASE INCREASED [None]
  - DYSSTASIA [None]
  - ELECTROCARDIOGRAM NORMAL [None]
  - EXTRASYSTOLES [None]
  - FATIGUE [None]
  - GAIT DISTURBANCE [None]
  - HYPOKALAEMIA [None]
  - MYALGIA [None]
  - PARALYSIS [None]
